FAERS Safety Report 13598778 (Version 1)
Quarter: 2017Q2

REPORT INFORMATION
  Report Type: Report from Study
  Country: US (occurrence: US)
  Receive Date: 20170531
  Receipt Date: 20170531
  Transmission Date: 20170830
  Serious: Yes (Hospitalization, Other)
  Sender: FDA-Public Use
  Company Number: US-GILEAD-2017-0274478

PATIENT
  Age: 70 Year
  Sex: Male

DRUGS (2)
  1. IDELALISIB [Suspect]
     Active Substance: IDELALISIB
     Indication: MANTLE CELL LYMPHOMA
     Dosage: 150 MG, BID
     Route: 048
     Dates: start: 201704, end: 201704
  2. VENCLEXTA [Concomitant]
     Active Substance: VENETOCLAX
     Dosage: UNK
     Dates: start: 201705

REACTIONS (4)
  - Metastases to liver [Unknown]
  - Off label use [Recovered/Resolved]
  - Neoplasm progression [Unknown]
  - Abdominal pain [Unknown]

NARRATIVE: CASE EVENT DATE: 201704
